FAERS Safety Report 23740422 (Version 1)
Quarter: 2024Q2

REPORT INFORMATION
  Report Type: Report from Study
  Country: TW (occurrence: None)
  Receive Date: 20240415
  Receipt Date: 20240415
  Transmission Date: 20240716
  Serious: Yes (Death, Hospitalization)
  Sender: FDA-Public Use
  Company Number: 2022A162493

PATIENT
  Age: 40 Year
  Sex: Male

DRUGS (1)
  1. IMFINZI [Suspect]
     Active Substance: DURVALUMAB
     Route: 042
     Dates: start: 20210121

REACTIONS (3)
  - Small intestinal haemorrhage [Fatal]
  - Sepsis [Fatal]
  - Hepatic cancer [Fatal]
